FAERS Safety Report 13538082 (Version 2)
Quarter: 2017Q2

REPORT INFORMATION
  Report Type: Report from Study
  Country: None (occurrence: GR)
  Receive Date: 20170512
  Receipt Date: 20170516
  Transmission Date: 20170830
  Serious: Yes (Hospitalization)
  Sender: FDA-Public Use
  Company Number: GR-ABBVIE-17K-066-1971207-00

PATIENT
  Age: 87 Year
  Sex: Male
  Weight: 95 kg

DRUGS (8)
  1. CARVEPEN [Concomitant]
     Active Substance: CARVEDILOL
     Indication: HYPERTENSION
     Route: 048
  2. ZYROLEN [Concomitant]
     Indication: CHRONIC RESPIRATORY DISEASE
     Dosage: TWO OR THREE TIMES DAILY AS REQUIRED
     Route: 055
  3. PULMICORT TURBUHALER [Concomitant]
     Active Substance: BUDESONIDE
     Indication: CHRONIC RESPIRATORY DISEASE
     Dosage: TWO OR THREE TIMES DAILY AS REQUIRED
     Route: 055
  4. SEROPRAM [Concomitant]
     Active Substance: CITALOPRAM HYDROBROMIDE
     Indication: DEPRESSION
     Route: 048
  5. TANILAS [Concomitant]
     Indication: CONSTIPATION
     Route: 048
  6. MICARDIS [Concomitant]
     Active Substance: TELMISARTAN
     Indication: HYPERTENSION
     Route: 048
  7. DUODOPA [Suspect]
     Active Substance: CARBIDOPA\LEVODOPA
     Indication: PARKINSON^S DISEASE
     Dosage: MORNING DOSE: 8.8ML; CONTINUOUS RATE: 3.3ML/H; EXTRA DOSE: 1.2ML (0-4 TIMES PER DAY)
     Route: 050
     Dates: start: 20170221
  8. NOVOMIX 30 FLEXPEN INSULIN [Concomitant]
     Indication: TYPE 2 DIABETES MELLITUS
     Route: 058

REACTIONS (4)
  - Cough [Recovered/Resolved]
  - Respiratory tract infection [Recovering/Resolving]
  - Oxygen saturation decreased [Recovered/Resolved]
  - Dyspnoea [Recovered/Resolved]

NARRATIVE: CASE EVENT DATE: 20170428
